FAERS Safety Report 6618137-5 (Version None)
Quarter: 2010Q1

REPORT INFORMATION
  Report Type: 
  Country: None (occurrence: None)
  Receive Date: 20100302
  Receipt Date: 20100216
  Transmission Date: 20100710
  Serious: Yes (Hospitalization)
  Sender: FDA-Public Use
  Company Number: 1000012046

PATIENT
  Age: 87 Year
  Sex: Female

DRUGS (8)
  1. ESCITALOPRAM [Suspect]
     Dosage: ORAL
     Route: 048
     Dates: end: 20100109
  2. LISINOPRIL [Suspect]
     Dosage: ORAL
     Route: 048
     Dates: end: 20100109
  3. FUROSEMIDE [Suspect]
     Dosage: ORAL
     Route: 048
     Dates: start: 20100108
  4. DIGOXIN [Concomitant]
  5. INIPOMP [Concomitant]
  6. PREVISCAN [Concomitant]
  7. VASTAREL [Concomitant]
  8. TARDYFERON [Concomitant]

REACTIONS (4)
  - BLOOD PRESSURE SYSTOLIC INCREASED [None]
  - LOSS OF CONSCIOUSNESS [None]
  - MALAISE [None]
  - ORTHOSTATIC HYPOTENSION [None]
